FAERS Safety Report 15320652 (Version 4)
Quarter: 2019Q2

REPORT INFORMATION
  Report Type: Report from Study
  Country: US (occurrence: US)
  Receive Date: 20180827
  Receipt Date: 20190412
  Transmission Date: 20190711
  Serious: Yes (Hospitalization)
  Sender: FDA-Public Use
  Company Number: US-ROCHE-2159342

PATIENT
  Age: 54 Year
  Sex: Male
  Weight: 85.3 kg

DRUGS (16)
  1. ATEZOLIZUMAB. [Suspect]
     Active Substance: ATEZOLIZUMAB
     Indication: HORMONE-REFRACTORY PROSTATE CANCER
     Dosage: MOST RECENT DOSE OF ATEZOLIZUMAB PRIOR TO THE ONSET OF EVENT 14/JUN/2018
     Route: 042
     Dates: start: 20180424, end: 20180614
  2. LUPRON [Concomitant]
     Active Substance: LEUPROLIDE ACETATE
  3. MORPHINE [Concomitant]
     Active Substance: MORPHINE
  4. PRILOSEC [Concomitant]
     Active Substance: OMEPRAZOLE MAGNESIUM
  5. MAXALT-MLT [Concomitant]
     Active Substance: RIZATRIPTAN BENZOATE
  6. CIALIS [Concomitant]
     Active Substance: TADALAFIL
  7. ULTRAM [Concomitant]
     Active Substance: TRAMADOL HYDROCHLORIDE
  8. NAPROSYN [Concomitant]
     Active Substance: NAPROXEN
     Route: 065
  9. CARAFATE [Concomitant]
     Active Substance: SUCRALFATE
  10. TESSALON [Concomitant]
     Active Substance: BENZONATATE
  11. XGEVA [Concomitant]
     Active Substance: DENOSUMAB
  12. XANAX [Concomitant]
     Active Substance: ALPRAZOLAM
  13. XL184 [Suspect]
     Active Substance: CABOZANTINIB
     Indication: HORMONE-REFRACTORY PROSTATE CANCER
     Dosage: MOST RECENT DOSE OF CABOZANTINIB PRIOR TO THE ONSET 04/JUL/2018
     Route: 048
     Dates: start: 20180424
  14. XL184 [Suspect]
     Active Substance: CABOZANTINIB
     Indication: HORMONE-REFRACTORY PROSTATE CANCER
     Route: 048
  15. VITAMIN B12 [Concomitant]
     Active Substance: CYANOCOBALAMIN
  16. PAXIL [Concomitant]
     Active Substance: PAROXETINE HYDROCHLORIDE

REACTIONS (5)
  - Lung infection [Recovering/Resolving]
  - Blood bilirubin increased [Recovered/Resolved]
  - Clostridium difficile colitis [Not Recovered/Not Resolved]
  - Pleural effusion [Recovering/Resolving]
  - Hypoxia [Recovered/Resolved]

NARRATIVE: CASE EVENT DATE: 20180705
